FAERS Safety Report 24156826 (Version 1)
Quarter: 2024Q3

REPORT INFORMATION
  Report Type: Spontaneous
  Country: US (occurrence: None)
  Receive Date: 20240730
  Receipt Date: 20240730
  Transmission Date: 20241017
  Serious: Yes (Other)
  Sender: Public
  Company Number: None

PATIENT
  Age: 68 Year
  Sex: Male
  Weight: 87.3 kg

DRUGS (10)
  1. ALIROCUMAB [Suspect]
     Active Substance: ALIROCUMAB
     Indication: Hyperlipidaemia
     Dosage: OTHER FREQUENCY : EVERY TWO WEEKS;?
     Route: 058
     Dates: start: 20240711, end: 20240725
  2. ALIROCUMAB [Suspect]
     Active Substance: ALIROCUMAB
     Indication: Coronary artery disease
  3. ESTRADIOL [Concomitant]
     Active Substance: ESTRADIOL
     Dates: start: 20210101
  4. FINASTERIDE [Concomitant]
     Active Substance: FINASTERIDE
     Dates: start: 20210101
  5. PROGESTERONE [Concomitant]
     Active Substance: PROGESTERONE
     Dates: start: 20220822
  6. SPIRONOLACTONE [Concomitant]
     Active Substance: SPIRONOLACTONE
     Dates: start: 20210101
  7. OMEPRAZOLE [Concomitant]
     Active Substance: OMEPRAZOLE
     Dates: start: 20200320
  8. ASPIRIN [Concomitant]
     Active Substance: ASPIRIN
  9. CHOLECALCIFEROL [Concomitant]
     Active Substance: CHOLECALCIFEROL
  10. VITAMINS [Concomitant]
     Active Substance: VITAMINS

REACTIONS (13)
  - Drug intolerance [None]
  - Myalgia [None]
  - Fatigue [None]
  - Blood pressure increased [None]
  - Hypersomnia [None]
  - Gait disturbance [None]
  - Muscle fatigue [None]
  - Asthenia [None]
  - Mood altered [None]
  - Irritability [None]
  - Agitation [None]
  - Disturbance in attention [None]
  - Mental status changes [None]

NARRATIVE: CASE EVENT DATE: 20240715
